FAERS Safety Report 5717524-7 (Version None)
Quarter: 2008Q2

REPORT INFORMATION
  Report Type: 
  Country: None (occurrence: None)
  Receive Date: 20080425
  Receipt Date: 20080418
  Transmission Date: 20081010
  Serious: Yes (Hospitalization)
  Sender: FDA-Public Use
  Company Number: BR-ASTRAZENECA-2008UW08200

PATIENT
  Age: 71 Year
  Sex: Female
  Weight: 38 kg

DRUGS (1)
  1. ARIMIDEX [Suspect]
     Indication: LUNG NEOPLASM MALIGNANT
     Route: 048
     Dates: start: 20050101

REACTIONS (2)
  - OFF LABEL USE [None]
  - PNEUMONIA [None]
